FAERS Safety Report 16068179 (Version 1)
Quarter: 2019Q1

REPORT INFORMATION
  Report Type: Spontaneous
  Country: ES (occurrence: ES)
  Receive Date: 20190313
  Receipt Date: 20190313
  Transmission Date: 20190418
  Serious: Yes (Hospitalization)
  Sender: FDA-Public Use
  Company Number: ES-PFIZER INC-2019106760

PATIENT
  Age: 95 Year
  Sex: Female

DRUGS (2)
  1. LEVOFLOXACIN. [Interacting]
     Active Substance: LEVOFLOXACIN
     Indication: RESPIRATORY TRACT INFECTION
     Dosage: 500 MG, 1X/DAY (EVERY 24HOURS)
     Route: 048
     Dates: start: 20181130, end: 20181206
  2. CLINDAMYCIN HCL [Suspect]
     Active Substance: CLINDAMYCIN HYDROCHLORIDE
     Dosage: 300 MG, 3X/DAY (EVERY 8 HOURS)
     Route: 048
     Dates: start: 20181130, end: 20181206

REACTIONS (2)
  - Drug interaction [Recovered/Resolved]
  - Clostridium difficile colitis [Recovered/Resolved]

NARRATIVE: CASE EVENT DATE: 20181228
